FAERS Safety Report 8275851-6 (Version None)
Quarter: 2012Q2

REPORT INFORMATION
  Report Type: 
  Country: None (occurrence: None)
  Receive Date: 20120410
  Receipt Date: 20120410
  Transmission Date: 20120825
  Serious: Yes (Hospitalization)
  Sender: FDA-Public Use
  Company Number: None

PATIENT
  Sex: Female
  Weight: 65.4 kg

DRUGS (10)
  1. ALPRAZOLAM [Concomitant]
  2. ASPIRIN [Concomitant]
  3. ARICEPT [Suspect]
     Indication: COGNITIVE DISORDER
     Dosage: 5MG WEEKS 1-6, 10MG WEEKS 7-24 EVERY DAY PO
     Route: 048
     Dates: start: 20110914, end: 20120305
  4. MAGNESIUM CHLORIDE [Concomitant]
  5. OMEPRAZOLE [Concomitant]
  6. BUPROPION HCL [Concomitant]
  7. SIMVASTATIN [Concomitant]
  8. ZOLPIDEM [Concomitant]
  9. LISINOPRIL [Concomitant]
  10. METFORMIN HCL [Concomitant]

REACTIONS (1)
  - INGUINAL HERNIA, OBSTRUCTIVE [None]
